FAERS Safety Report 22586011 (Version 1)
Quarter: 2023Q2

REPORT INFORMATION
  Report Type: Spontaneous
  Country: DE (occurrence: DE)
  Receive Date: 20230610
  Receipt Date: 20230610
  Transmission Date: 20230722
  Serious: Yes (Other)
  Sender: FDA-Public Use
  Company Number: None

PATIENT
  Age: 53 Year
  Sex: Female

DRUGS (4)
  1. MIRTAZAPINE [Suspect]
     Active Substance: MIRTAZAPINE
     Indication: Sleep disorder
     Route: 065
     Dates: start: 202212, end: 202301
  2. MIRTAZAPINE [Suspect]
     Active Substance: MIRTAZAPINE
     Indication: Depression
  3. LORAZEPAM [Concomitant]
     Active Substance: LORAZEPAM
     Indication: Anxiety
     Dosage: INCREASED TO 3MG OVER TIME
     Route: 065
     Dates: start: 202301
  4. LORAZEPAM [Concomitant]
     Active Substance: LORAZEPAM
     Indication: Restlessness

REACTIONS (6)
  - Hyponatraemia [Not Recovered/Not Resolved]
  - Tardive dyskinesia [Not Recovered/Not Resolved]
  - Hypokinesia [Not Recovered/Not Resolved]
  - Movement disorder [Not Recovered/Not Resolved]
  - Chills [Not Recovered/Not Resolved]
  - Parkinsonian gait [Not Recovered/Not Resolved]

NARRATIVE: CASE EVENT DATE: 20230101
